FAERS Safety Report 18889274 (Version 6)
Quarter: 2021Q3

REPORT INFORMATION
  Report Type: Report from Study
  Country: US (occurrence: US)
  Receive Date: 20210213
  Receipt Date: 20210712
  Transmission Date: 20211014
  Serious: Yes (Other)
  Sender: FDA-Public Use
  Company Number: NVSC2021US030535

PATIENT
  Sex: Female

DRUGS (4)
  1. PROMACTA [Suspect]
     Active Substance: ELTROMBOPAG OLAMINE
     Indication: IMMUNE THROMBOCYTOPENIA
     Dosage: UNK (START DATE: 05 FEB)
     Route: 065
  2. PROMACTA [Suspect]
     Active Substance: ELTROMBOPAG OLAMINE
     Dosage: UNK, QOD (07 APR)
     Route: 065
  3. PROMACTA [Suspect]
     Active Substance: ELTROMBOPAG OLAMINE
     Dosage: UNK, QOD
     Route: 065
  4. PROMACTA [Suspect]
     Active Substance: ELTROMBOPAG OLAMINE
     Dosage: UNK, QD (5 MAY)
     Route: 065

REACTIONS (8)
  - Platelet count decreased [Unknown]
  - Thrombosis [Unknown]
  - Swelling [Unknown]
  - Diarrhoea [Unknown]
  - Fatigue [Unknown]
  - Platelet count abnormal [Unknown]
  - Epistaxis [Unknown]
  - Haemorrhage [Unknown]
